FAERS Safety Report 17850331 (Version 1)
Quarter: 2020Q2

REPORT INFORMATION
  Report Type: Spontaneous
  Country: US (occurrence: US)
  Receive Date: 20200602
  Receipt Date: 20200602
  Transmission Date: 20200714
  Serious: Yes (Hospitalization)
  Sender: FDA-Public Use
  Company Number: US-CELGENEUS-USA-20200508559

PATIENT
  Sex: Female

DRUGS (1)
  1. IDHIFA [Suspect]
     Active Substance: ENASIDENIB MESYLATE
     Indication: ACUTE MYELOID LEUKAEMIA
     Dosage: 100 MILLIGRAM
     Route: 048
     Dates: start: 20200403

REACTIONS (4)
  - Muscular weakness [Unknown]
  - Arthralgia [Unknown]
  - Musculoskeletal pain [Unknown]
  - Headache [Unknown]

NARRATIVE: CASE EVENT DATE: 2020
